FAERS Safety Report 24152500 (Version 1)
Quarter: 2024Q3

REPORT INFORMATION
  Report Type: Report from Study
  Country: US (occurrence: US)
  Receive Date: 20240730
  Receipt Date: 20240730
  Transmission Date: 20241016
  Serious: Yes (Other)
  Sender: SANOFI AVENTIS
  Company Number: US-SA-SAC20230406001105

PATIENT
  Age: 36 Year
  Sex: Female

DRUGS (2)
  1. ELIGLUSTAT [Suspect]
     Active Substance: ELIGLUSTAT
     Indication: Gaucher^s disease
     Dosage: 84 (UNIT NOT KNOWN), BID
     Route: 048
     Dates: start: 20230129, end: 2023
  2. ELIGLUSTAT [Suspect]
     Active Substance: ELIGLUSTAT
     Dosage: 84 (UNIT NOT KNOWN), QD
     Route: 048
     Dates: start: 202302

REACTIONS (3)
  - Ichthyosis [Recovering/Resolving]
  - Dry skin [Recovering/Resolving]
  - Dyspepsia [Recovering/Resolving]

NARRATIVE: CASE EVENT DATE: 20230101
